FAERS Safety Report 7224188-2 (Version None)
Quarter: 2011Q1

REPORT INFORMATION
  Report Type: 
  Country: None (occurrence: None)
  Receive Date: 20110113
  Receipt Date: 20100806
  Transmission Date: 20110831
  Serious: Yes (Hospitalization, Other)
  Sender: FDA-Public Use
  Company Number: US-BAYER-201014061NA

PATIENT
  Sex: Female

DRUGS (4)
  1. LOVENOX [Concomitant]
     Dosage: UNK
     Dates: start: 20090201
  2. COUMADIN [Concomitant]
     Dosage: UNK
     Dates: start: 20090201
  3. ANTIBIOTICS [Concomitant]
  4. YASMIN [Suspect]
     Indication: ORAL CONTRACEPTION
     Dosage: UNK
     Route: 048
     Dates: start: 20050101, end: 20090101

REACTIONS (3)
  - PULMONARY EMBOLISM [None]
  - CHOLECYSTECTOMY [None]
  - HYSTERECTOMY [None]
